FAERS Safety Report 7302380-6 (Version None)
Quarter: 2011Q1

REPORT INFORMATION
  Report Type: 
  Country: None (occurrence: None)
  Receive Date: 20110218
  Receipt Date: 20091014
  Transmission Date: 20110831
  Serious: Yes (Other)
  Sender: FDA-Public Use
  Company Number: US-SANOFI-AVENTIS-200918665US

PATIENT
  Age: 67 Year
  Sex: Female

DRUGS (2)
  1. INSULIN GLARGINE [Suspect]
     Dosage: DOSE AS USED: 14-16 U
     Route: 058
     Dates: start: 20060101
  2. OPTICLICK [Suspect]
     Dates: start: 20060101

REACTIONS (3)
  - PRODUCT QUALITY ISSUE [None]
  - DEVICE MALFUNCTION [None]
  - HYPOGLYCAEMIA [None]
